FAERS Safety Report 7526370-3 (Version None)
Quarter: 2011Q2

REPORT INFORMATION
  Report Type: 
  Country: None (occurrence: None)
  Receive Date: 20110603
  Receipt Date: 20110603
  Transmission Date: 20111010
  Serious: Yes (Hospitalization)
  Sender: FDA-Public Use
  Company Number: None

PATIENT
  Age: 16 Year
  Sex: Male
  Weight: 69.4003 kg

DRUGS (1)
  1. HALDOL [Suspect]
     Indication: AGITATION
     Dates: start: 20110508

REACTIONS (8)
  - MUSCLE SPASMS [None]
  - HEART RATE INCREASED [None]
  - DYSKINESIA [None]
  - JOINT LOCK [None]
  - TREMOR [None]
  - PARANOIA [None]
  - PAIN IN EXTREMITY [None]
  - BACK PAIN [None]
